FAERS Safety Report 17489053 (Version 1)
Quarter: 2020Q1

REPORT INFORMATION
  Report Type: Spontaneous
  Country: US (occurrence: US)
  Receive Date: 20200303
  Receipt Date: 20200303
  Transmission Date: 20200409
  Serious: Yes (Hospitalization)
  Sender: FDA-Public Use
  Company Number: None

PATIENT
  Age: 13 Year
  Sex: Male
  Weight: 56.25 kg

DRUGS (5)
  1. LEVOFLOXACIN. [Suspect]
     Active Substance: LEVOFLOXACIN
     Indication: PNEUMONIA
     Dosage: ?          QUANTITY:1 TABLET(S);?
     Route: 048
     Dates: start: 20200118, end: 20200120
  2. PLAQUENIL [Concomitant]
     Active Substance: HYDROXYCHLOROQUINE SULFATE
  3. D3 MULTIVITAMIN [Concomitant]
  4. ESBRIET [Concomitant]
     Active Substance: PIRFENIDONE
  5. OXYGEN. [Concomitant]
     Active Substance: OXYGEN

REACTIONS (5)
  - Oxygen saturation decreased [None]
  - Tremor [None]
  - Product use issue [None]
  - Heart rate increased [None]
  - Hyperhidrosis [None]

NARRATIVE: CASE EVENT DATE: 20200118
